FAERS Safety Report 10144561 (Version 2)
Quarter: 2014Q2

REPORT INFORMATION
  Report Type: Spontaneous
  Country: US (occurrence: US)
  Receive Date: 20140430
  Receipt Date: 20140430
  Transmission Date: 20141212
  Serious: Yes (Hospitalization)
  Sender: FDA-Public Use
  Company Number: US-SANOFI-AVENTIS-2011SA018521

PATIENT
  Age: 43 Year
  Sex: Female
  Weight: 72.1 kg

DRUGS (16)
  1. LOVENOX [Suspect]
     Indication: PULMONARY EMBOLISM
     Route: 058
     Dates: start: 20110113, end: 20110126
  2. LOVENOX [Suspect]
     Indication: PULMONARY EMBOLISM
     Route: 058
     Dates: start: 20110321
  3. CRIZOTINIB [Suspect]
     Indication: NON-SMALL CELL LUNG CANCER
     Route: 048
     Dates: start: 20100203
  4. CRIZOTINIB [Suspect]
     Indication: NON-SMALL CELL LUNG CANCER
     Route: 048
  5. COMPAZINE [Concomitant]
     Indication: NAUSEA
     Dates: start: 20100203
  6. FUROSEMIDE [Concomitant]
     Indication: OEDEMA
     Dates: start: 20100329
  7. LORAZEPAM [Concomitant]
     Indication: ANXIETY
     Dates: start: 20100119
  8. VITAMINS [Concomitant]
     Indication: NUTRITIONAL SUPPLEMENTATION
     Dates: start: 20090501
  9. AMBIEN [Concomitant]
     Indication: INSOMNIA
     Dates: start: 20101115, end: 20101123
  10. CLONAZEPAM [Concomitant]
     Indication: DEPRESSION
     Dates: start: 20101123, end: 20110118
  11. CLONAZEPAM [Concomitant]
     Indication: ANXIETY
     Dates: start: 20101123, end: 20110118
  12. DAPSONE [Concomitant]
     Indication: STEROID THERAPY
     Dates: start: 20101207, end: 201101
  13. DAPSONE [Concomitant]
     Indication: PROPHYLAXIS
     Dates: start: 20101207, end: 201101
  14. DEXAMETHASONE [Concomitant]
     Indication: METASTASES TO CENTRAL NERVOUS SYSTEM
     Dates: start: 20101104, end: 20110118
  15. DEXAMETHASONE [Concomitant]
     Indication: HEADACHE
     Dates: start: 20101104, end: 20110118
  16. ZYPREXA [Concomitant]
     Dates: start: 20110118

REACTIONS (6)
  - Brain stem haemorrhage [Recovered/Resolved]
  - Diplopia [Not Recovered/Not Resolved]
  - Confusional state [Not Recovered/Not Resolved]
  - Speech disorder [Not Recovered/Not Resolved]
  - Nystagmus [Not Recovered/Not Resolved]
  - Hypoaesthesia [Not Recovered/Not Resolved]
